FAERS Safety Report 7561007-9 (Version None)
Quarter: 2011Q2

REPORT INFORMATION
  Report Type: 
  Country: None (occurrence: None)
  Receive Date: 20110621
  Receipt Date: 20101103
  Transmission Date: 20111010
  Serious: No
  Sender: FDA-Public Use
  Company Number: US-ASTRAZENECA-2010SE52318

PATIENT
  Age: 52 Year
  Sex: Male

DRUGS (3)
  1. ATACAND HCT [Suspect]
     Indication: HYPERTENSION
     Dosage: 16/12.5 MG DAILY
     Route: 048
  2. TRICOR [Concomitant]
  3. ZOCOR [Concomitant]

REACTIONS (2)
  - BLOOD AMYLASE DECREASED [None]
  - PANCREATITIS [None]
